FAERS Safety Report 22523807 (Version 1)
Quarter: 2023Q2

REPORT INFORMATION
  Report Type: Spontaneous
  Country: US (occurrence: US)
  Receive Date: 20230606
  Receipt Date: 20230606
  Transmission Date: 20230722
  Serious: No
  Sender: FDA-Public Use
  Company Number: US-Hikma Pharmaceuticals USA Inc.-US-H14001-22-02733

PATIENT
  Age: 77 Year
  Sex: Male
  Weight: 58.5 kg

DRUGS (6)
  1. FLUTICASONE PROPIONATE [Suspect]
     Active Substance: FLUTICASONE PROPIONATE
     Indication: Nasal congestion
     Dosage: 50 MCG; ONE SPRAY IN EACH NOSTRIL
     Route: 045
     Dates: start: 20220917, end: 20221001
  2. FLUTICASONE PROPIONATE [Suspect]
     Active Substance: FLUTICASONE PROPIONATE
     Dosage: 50 MCG; ONE SPRAY IN EACH NOSTRIL
     Route: 045
     Dates: start: 20221015
  3. ASPIRIN [Concomitant]
     Active Substance: ASPIRIN
     Indication: Product used for unknown indication
     Dosage: UNKNOWN
     Route: 065
     Dates: start: 2022
  4. ZYPREXA [Concomitant]
     Active Substance: OLANZAPINE
     Indication: Visual impairment
     Dosage: UNKNOWN
     Route: 065
     Dates: start: 2005
  5. WELLBUTRIN [Concomitant]
     Active Substance: BUPROPION HYDROCHLORIDE
     Indication: Psychomotor hyperactivity
     Dosage: UNKNOWN
     Route: 065
     Dates: start: 2005
  6. TYLENOL [Concomitant]
     Active Substance: ACETAMINOPHEN
     Indication: Product used for unknown indication
     Dosage: UNKNOWN
     Route: 065
     Dates: start: 2022

REACTIONS (4)
  - Agitation [Not Recovered/Not Resolved]
  - Irritability [Not Recovered/Not Resolved]
  - Therapeutic response unexpected [Not Recovered/Not Resolved]
  - Inappropriate schedule of product administration [Unknown]

NARRATIVE: CASE EVENT DATE: 20220917
